FAERS Safety Report 7575289-0 (Version None)
Quarter: 2011Q2

REPORT INFORMATION
  Report Type: 
  Country: None (occurrence: None)
  Receive Date: 20110627
  Receipt Date: 20110621
  Transmission Date: 20111010
  Serious: Yes (Life-Threatening, Other)
  Sender: FDA-Public Use
  Company Number: JP-PFIZER INC-2011121273

PATIENT
  Age: 20 Year
  Sex: Female
  Weight: 13 kg

DRUGS (5)
  1. CLONAZEPAM [Concomitant]
     Indication: EPILEPSY
     Dosage: 1.1 MG, 2X/DAY
     Route: 048
     Dates: start: 20080208
  2. ZYVOX [Suspect]
     Indication: STAPHYLOCOCCAL OSTEOMYELITIS
     Dosage: 600 MG, 2X/DAY
     Route: 041
     Dates: start: 20110517, end: 20110609
  3. ZOSYN [Concomitant]
     Indication: PSEUDOMONAS INFECTION
     Dosage: 1.5 G, 3X/DAY
     Route: 041
     Dates: start: 20110523, end: 20110610
  4. TOPIRAMATE [Concomitant]
     Indication: EPILEPSY
     Dosage: 90 MG, 2X/DAY
     Route: 048
     Dates: start: 20080812
  5. ZYVOX [Suspect]
     Dosage: 200 MG, 2X/DAY
     Route: 041
     Dates: start: 20110610

REACTIONS (5)
  - LACTIC ACIDOSIS [None]
  - CARDIAC FAILURE [None]
  - ARTERIAL HAEMORRHAGE [None]
  - DRUG INEFFECTIVE FOR UNAPPROVED INDICATION [None]
  - SEPSIS [None]
